APPROVED DRUG PRODUCT: MYCIFRADIN
Active Ingredient: NEOMYCIN SULFATE
Strength: EQ 350MG BASE
Dosage Form/Route: TABLET;ORAL
Application: A060520 | Product #001
Applicant: PHARMACIA AND UPJOHN CO
Approved: Approved Prior to Jan 1, 1982 | RLD: No | RS: No | Type: DISCN